FAERS Safety Report 24888366 (Version 1)
Quarter: 2025Q1

REPORT INFORMATION
  Report Type: Spontaneous
  Country: US (occurrence: None)
  Receive Date: 20250126
  Receipt Date: 20250126
  Transmission Date: 20250409
  Serious: Yes (Other)
  Sender: FDA-CTU
  Company Number: None

PATIENT
  Age: 45 Year
  Sex: Female
  Weight: 60.75 kg

DRUGS (1)
  1. DROPERIDOL [Suspect]
     Active Substance: DROPERIDOL
     Indication: Migraine

REACTIONS (8)
  - Feeling abnormal [None]
  - Dizziness [None]
  - Limb discomfort [None]
  - Fear [None]
  - Mental disorder [None]
  - Injury [None]
  - Anxiety [None]
  - Thinking abnormal [None]

NARRATIVE: CASE EVENT DATE: 20241206
